FAERS Safety Report 7878360 (Version 4)
Quarter: 2013Q1

REPORT INFORMATION
  Report Type: Report from Study
  Country: US (occurrence: US)
  Receive Date: 20110330
  Receipt Date: 20130110
  Transmission Date: 20140127
  Serious: Yes (Hospitalization, Other)
  Sender: FDA-Public Use
  Company Number: US-ACTELION-A-NJ2011-46439

PATIENT
  Age: 65 Year
  Sex: Male

DRUGS (2)
  1. TRACLEER [Suspect]
     Indication: PULMONARY ARTERIAL HYPERTENSION
     Dosage: 62.5 MG, BID
     Route: 048
  2. TRACLEER [Suspect]
     Dosage: 125 MG, BID
     Route: 048

REACTIONS (7)
  - Dialysis [Unknown]
  - Anaemia [Unknown]
  - Transfusion [Unknown]
  - Shunt occlusion [Recovered/Resolved]
  - Hypotension [Recovered/Resolved]
  - Drug dose omission [Unknown]
  - Dizziness [Unknown]
